FAERS Safety Report 4286132-X (Version None)
Quarter: 2004Q1

REPORT INFORMATION
  Report Type: 
  Country: None (occurrence: None)
  Receive Date: 20040120
  Receipt Date: 20031029
  Transmission Date: 20041129
  Serious: Yes (Other)
  Sender: FDA-Public Use
  Company Number: 03-000308

PATIENT
  Sex: Female

DRUGS (1)
  1. FEMRING (ESTRADIOL ACETATE) VAGINAL RING [Suspect]
     Dosage: QD, VAGINAL
     Route: 067

REACTIONS (4)
  - DEHYDRATION [None]
  - NAUSEA [None]
  - PANCREATITIS [None]
  - VOMITING [None]
